FAERS Safety Report 25182822 (Version 11)
Quarter: 2025Q4

REPORT INFORMATION
  Report Type: Spontaneous
  Country: EU (occurrence: EU)
  Receive Date: 20250410
  Receipt Date: 20251127
  Transmission Date: 20260118
  Serious: Yes (Hospitalization, Other)
  Sender: ROCHE
  Company Number: None

PATIENT
  Age: 66 Year
  Sex: Female
  Weight: 80 kg

DRUGS (78)
  1. TRASTUZUMAB [Suspect]
     Active Substance: TRASTUZUMAB
     Indication: Breast cancer metastatic
     Dosage: 624 MG, QD
     Route: 065
     Dates: start: 20170224, end: 20170224
  2. TRASTUZUMAB [Suspect]
     Active Substance: TRASTUZUMAB
     Dosage: 468 MG QD
     Route: 065
     Dates: start: 20170720, end: 20170720
  3. TRASTUZUMAB [Suspect]
     Active Substance: TRASTUZUMAB
     Dosage: 540 MG, Q3W
     Route: 065
     Dates: start: 20200422, end: 20200615
  4. TRASTUZUMAB [Suspect]
     Active Substance: TRASTUZUMAB
     Dosage: 560 MG, Q3W
     Route: 065
     Dates: start: 20201230, end: 20210210
  5. TRASTUZUMAB [Suspect]
     Active Substance: TRASTUZUMAB
     Dosage: 462 MG, Q3W
     Route: 065
  6. TRASTUZUMAB [Suspect]
     Active Substance: TRASTUZUMAB
     Dosage: 432 MG, QD
     Route: 065
  7. TRASTUZUMAB [Suspect]
     Active Substance: TRASTUZUMAB
     Dosage: 414 MG, Q3W
     Route: 065
  8. TRASTUZUMAB [Suspect]
     Active Substance: TRASTUZUMAB
     Dosage: 408 MG, Q3W
     Route: 065
  9. TRASTUZUMAB [Suspect]
     Active Substance: TRASTUZUMAB
     Dosage: 390 MG
     Route: 065
  10. KADCYLA [Suspect]
     Active Substance: ADO-TRASTUZUMAB EMTANSINE
     Indication: Breast cancer metastatic
     Dosage: 270 MG, Q3W
     Route: 065
     Dates: start: 20190306, end: 20190909
  11. CAPECITABINE [Suspect]
     Active Substance: CAPECITABINE
     Indication: Breast cancer metastatic
     Dosage: 2000 MG, QD
     Route: 048
  12. CAPECITABINE [Suspect]
     Active Substance: CAPECITABINE
     Dosage: 3000 MG, QD;
     Route: 065
  13. CAPECITABINE [Suspect]
     Active Substance: CAPECITABINE
     Dosage: 3000 MG, QD
     Route: 065
  14. CAPECITABINE [Suspect]
     Active Substance: CAPECITABINE
     Dosage: 3500 MG, QD
     Route: 065
  15. PERJETA [Suspect]
     Active Substance: PERTUZUMAB
     Indication: Breast cancer metastatic
     Dosage: 840 MG, QD
     Route: 065
     Dates: start: 20170224, end: 20170224
  16. PERJETA [Suspect]
     Active Substance: PERTUZUMAB
     Dosage: 840 MG, QD
     Route: 065
     Dates: start: 20200422, end: 20200615
  17. PERJETA [Suspect]
     Active Substance: PERTUZUMAB
     Dosage: 840 MG, QD
     Route: 065
     Dates: start: 20210317, end: 20210428
  18. DENOSUMAB [Suspect]
     Active Substance: DENOSUMAB
     Indication: Breast cancer metastatic
     Dosage: 120 MG, Q4W
     Route: 042
     Dates: end: 20210210
  19. LAPATINIB [Suspect]
     Active Substance: LAPATINIB
     Indication: Breast cancer metastatic
     Dosage: 1250 MG, QD
     Route: 065
     Dates: start: 20191002, end: 20200107
  20. TUCATINIB [Suspect]
     Active Substance: TUCATINIB
     Indication: Breast cancer metastatic
     Dosage: 300 MG, BID
     Route: 065
     Dates: end: 20210210
  21. BLEOMYCIN SULFATE [Suspect]
     Active Substance: BLEOMYCIN SULFATE
     Indication: Breast cancer metastatic
     Dosage: 26.85 MG, QD
     Route: 065
     Dates: end: 20200519
  22. BLEOMYCIN SULFATE [Suspect]
     Active Substance: BLEOMYCIN SULFATE
     Indication: HER2 positive breast cancer
     Dosage: 26.85 MG, QD
     Route: 065
     Dates: start: 20210105, end: 20210105
  23. BLEOMYCIN SULFATE [Suspect]
     Active Substance: BLEOMYCIN SULFATE
     Dosage: 1 DF, QD
     Route: 065
     Dates: start: 20210105, end: 20250105
  24. DOXORUBICIN HYDROCHLORIDE [Suspect]
     Active Substance: DOXORUBICIN HYDROCHLORIDE
     Indication: Breast cancer metastatic
     Dosage: 104.400MG QD
     Route: 065
     Dates: end: 20210608
  25. VINORELBINE TARTRATE [Suspect]
     Active Substance: VINORELBINE TARTRATE
     Indication: Breast cancer metastatic
     Dosage: 45 MG, Q3W
     Route: 065
     Dates: end: 20200722
  26. FASLODEX [Suspect]
     Active Substance: FULVESTRANT
     Indication: Breast cancer metastatic
     Dosage: 500 MG, BIW
     Route: 065
     Dates: start: 20171002
  27. FASLODEX [Suspect]
     Active Substance: FULVESTRANT
     Dosage: 500 MG, QM
     Route: 065
     Dates: start: 20171116, end: 20191001
  28. TRASTUZUMAB DERUXTECAN [Suspect]
     Active Substance: TRASTUZUMAB DERUXTECAN
     Indication: Breast cancer metastatic
     Dosage: UNK
     Route: 065
     Dates: end: 20201015
  29. TYKERB [Suspect]
     Active Substance: LAPATINIB DITOSYLATE
     Indication: Breast cancer metastatic
     Dosage: 1250 MG, QD
     Route: 065
     Dates: start: 20191002, end: 20200107
  30. TYKERB [Suspect]
     Active Substance: LAPATINIB DITOSYLATE
     Dosage: 1000 MG, QD
     Route: 065
     Dates: start: 20200108, end: 20200421
  31. DOCETAXEL [Suspect]
     Active Substance: DOCETAXEL
     Indication: Breast cancer metastatic
     Dosage: 183 MG (EVERY 17 DAYS)
     Route: 065
  32. DOCETAXEL [Suspect]
     Active Substance: DOCETAXEL
     Dosage: 190 MG, Q3W
     Route: 065
  33. DOCETAXEL [Suspect]
     Active Substance: DOCETAXEL
     Dosage: 180 MG, Q3W
     Route: 065
  34. DOCETAXEL [Suspect]
     Active Substance: DOCETAXEL
     Dosage: 134.25 MG, Q3W
     Route: 065
  35. DOCETAXEL [Suspect]
     Active Substance: DOCETAXEL
     Dosage: 175 MG, EVERY 17 DAYS
     Route: 065
  36. POLYETHYLENE GLYCOL 3350\POTASSIUM CHLORIDE\SODIUM BICARBONATE\SODIUM [Concomitant]
     Active Substance: POLYETHYLENE GLYCOL 3350\POTASSIUM CHLORIDE\SODIUM BICARBONATE\SODIUM CHLORIDE
     Dosage: UNK
     Dates: start: 20210608, end: 20210616
  37. Scottopect [Concomitant]
     Dosage: UNK
     Dates: start: 20210611, end: 20210613
  38. METOCLOPRAMIDE HYDROCHLORIDE [Concomitant]
     Active Substance: METOCLOPRAMIDE HYDROCHLORIDE
     Dosage: UNK
     Dates: start: 20210608, end: 20210623
  39. MORPHINE [Concomitant]
     Active Substance: MORPHINE
     Dosage: UNK
  40. ALPRAZOLAM [Concomitant]
     Active Substance: ALPRAZOLAM
     Dosage: UNK
     Dates: start: 20210613, end: 20210615
  41. VITAMIN C [Concomitant]
     Active Substance: ASCORBIC ACID
     Dosage: UNK
     Dates: start: 20210611, end: 20210614
  42. HYDROMORPHONE HYDROCHLORIDE [Concomitant]
     Active Substance: HYDROMORPHONE HYDROCHLORIDE
     Dosage: UNK
     Dates: start: 20210611, end: 20210615
  43. NOVALGIN (METAMIZOLE SODIUM) [Concomitant]
     Active Substance: METAMIZOLE SODIUM
     Dosage: UNK
     Dates: start: 20210608, end: 20210615
  44. Neriforte [Concomitant]
     Dosage: UNK
     Dates: start: 20200430
  45. Cal c vita [Concomitant]
     Dosage: UNK
     Dates: start: 20170203, end: 20210612
  46. ZOFRAN [Concomitant]
     Active Substance: ONDANSETRON HYDROCHLORIDE
     Dosage: UNK
     Dates: start: 20210611, end: 20210616
  47. HALSET [CETYLPYRIDINIUM CHLORIDE [Concomitant]
     Dosage: UNK
     Dates: start: 20210611, end: 20210615
  48. EUTHYROX [Concomitant]
     Active Substance: LEVOTHYROXINE SODIUM
     Dosage: UNK
     Dates: start: 20170303, end: 20210615
  49. ONDANSETRON [Concomitant]
     Active Substance: ONDANSETRON
     Dosage: UNK
     Dates: start: 20210608, end: 20210610
  50. LORAZEPAM [Concomitant]
     Active Substance: LORAZEPAM
     Dosage: UNK
     Dates: start: 20210611, end: 20210621
  51. FENTANYL [Concomitant]
     Active Substance: FENTANYL
     Dosage: UNK
  52. ACETAMINOPHEN [Concomitant]
     Active Substance: ACETAMINOPHEN
     Dosage: UNK
     Dates: start: 20210622, end: 20210622
  53. BUTYLSCOPOLAMINE BROMIDE [Concomitant]
     Active Substance: BUTYLSCOPOLAMINE BROMIDE
     Dosage: UNK
     Dates: start: 20210618, end: 20210618
  54. RETINOL [Concomitant]
     Active Substance: RETINOL
     Dosage: UNK
     Dates: start: 20170329, end: 20210615
  55. PARACODIN [DIHYDROCODEINE] [Concomitant]
     Dosage: UNK
     Dates: start: 20210428, end: 20210615
  56. PANTOPRAZOLE [Concomitant]
     Active Substance: PANTOPRAZOLE
     Dosage: UNK
     Dates: start: 20210317, end: 20210623
  57. LEUKICHTAN [ICTASOL] [Concomitant]
     Dosage: UNK
     Dates: start: 20200430, end: 20200515
  58. DRONABINOL [Concomitant]
     Active Substance: DRONABINOL
     Dosage: UNK
     Dates: start: 20210608, end: 20210612
  59. EDOXABAN TOSYLATE [Concomitant]
     Active Substance: EDOXABAN TOSYLATE
     Dosage: UNK
     Dates: start: 20200613, end: 20210611
  60. XGEVA [Concomitant]
     Active Substance: DENOSUMAB
     Dosage: UNK
  61. LORAZEPAM [Concomitant]
     Active Substance: LORAZEPAM
     Dosage: UNK
  62. PREGABALIN [Concomitant]
     Active Substance: PREGABALIN
     Dosage: UNK
  63. ZIEXTENZO [Concomitant]
     Active Substance: PEGFILGRASTIM-BMEZ
     Dosage: UNK
  64. LACTULOSE [Concomitant]
     Active Substance: LACTULOSE
     Dosage: UNK
  65. BETAMETHASONE DIPROPIONATE [Concomitant]
     Active Substance: BETAMETHASONE DIPROPIONATE
  66. Ponveridol [Concomitant]
  67. CARBOXYMETHYLCELLULOSE SODIUM [Concomitant]
     Active Substance: CARBOXYMETHYLCELLULOSE SODIUM
  68. LEVOFLOXACIN [Concomitant]
     Active Substance: LEVOFLOXACIN
     Dosage: UNK
     Dates: start: 20170224, end: 20171130
  69. LEVOFLOXACIN [Concomitant]
     Active Substance: LEVOFLOXACIN
     Dosage: UNK
     Dates: start: 20200506, end: 20200512
  70. MORPHINE SULFATE [Concomitant]
     Active Substance: MORPHINE SULFATE
  71. CANRENOATE POTASSIUM [Concomitant]
     Active Substance: CANRENOATE POTASSIUM
     Dosage: UNK
     Dates: start: 20200427, end: 20200428
  72. DEXAMETHASONE [Concomitant]
     Active Substance: DEXAMETHASONE
     Dosage: UNK
     Dates: start: 20170810, end: 20200505
  73. SILICON [Concomitant]
     Active Substance: SILICON
     Dosage: UNK
     Dates: start: 20200521, end: 20200602
  74. BETAISODONA [Concomitant]
     Active Substance: POVIDONE-IODINE
     Dosage: UNK
     Dates: start: 20200430, end: 20200515
  75. CALCIUM CARBONATE\CHOLECALCIFEROL [Concomitant]
     Active Substance: CALCIUM CARBONATE\CHOLECALCIFEROL
     Dosage: UNK
     Dates: start: 20170203
  76. Aceclofenac and paracetamol [Concomitant]
     Dosage: UNK
     Dates: start: 20210622, end: 20210622
  77. KCL [Concomitant]
     Active Substance: POTASSIUM CHLORIDE
     Dosage: UNK
     Dates: start: 20170429
  78. TAZOBACTAM [Concomitant]
     Active Substance: TAZOBACTAM
     Dosage: UNK
     Dates: start: 20200423, end: 20200504

REACTIONS (21)
  - Metastases to central nervous system [Not Recovered/Not Resolved]
  - Metastases to lymph nodes [Not Recovered/Not Resolved]
  - Pseudomonal sepsis [Recovered/Resolved]
  - Sepsis [Recovered/Resolved]
  - Streptococcal sepsis [Recovered/Resolved]
  - Vascular device infection [Recovered/Resolved]
  - Brain oedema [Not Recovered/Not Resolved]
  - C-reactive protein increased [Not Recovered/Not Resolved]
  - Skin fissures [Recovered/Resolved]
  - Varicose vein [Not Recovered/Not Resolved]
  - Nail bed inflammation [Not Recovered/Not Resolved]
  - Eczema [Not Recovered/Not Resolved]
  - Restlessness [Not Recovered/Not Resolved]
  - Nasal mucosal disorder [Recovered/Resolved]
  - Candida infection [Recovered/Resolved]
  - Back pain [Recovered/Resolved]
  - Vomiting [Recovered/Resolved]
  - Nausea [Recovered/Resolved]
  - Fatigue [Not Recovered/Not Resolved]
  - Paronychia [Recovered/Resolved]
  - Pleural effusion [Recovered/Resolved]

NARRATIVE: CASE EVENT DATE: 20191101
